FAERS Safety Report 4889299-5 (Version None)
Quarter: 2006Q1

REPORT INFORMATION
  Report Type: 
  Country: None (occurrence: None)
  Receive Date: 20060120
  Receipt Date: 20060120
  Transmission Date: 20060701
  Serious: Yes (Hospitalization)
  Sender: FDA-Public Use
  Company Number: None

PATIENT
  Sex: Female

DRUGS (2)
  1. SERTRALINE [Suspect]
     Indication: DEPRESSION
  2. TRAZADONE [Suspect]

REACTIONS (3)
  - EYE IRRITATION [None]
  - FEELING ABNORMAL [None]
  - SENSATION OF FOREIGN BODY [None]
